FAERS Safety Report 24799790 (Version 1)
Quarter: 2025Q1

REPORT INFORMATION
  Report Type: Spontaneous
  Country: US (occurrence: US)
  Receive Date: 20250102
  Receipt Date: 20250102
  Transmission Date: 20250409
  Serious: No
  Sender: SANOFI AVENTIS
  Company Number: US-SA-2024SA385155

PATIENT
  Age: 57 Year
  Sex: Female

DRUGS (17)
  1. DUPIXENT [Suspect]
     Active Substance: DUPILUMAB
     Indication: Asthma
     Route: 058
     Dates: start: 20220126
  2. OXYBUTYNIN [Concomitant]
     Active Substance: OXYBUTYNIN
  3. BUDESONIDE [Concomitant]
     Active Substance: BUDESONIDE
  4. AZITHROMYCIN [Concomitant]
     Active Substance: AZITHROMYCIN
  5. ESTRADIOL [Concomitant]
     Active Substance: ESTRADIOL
  6. VITAMIN D3 [Concomitant]
     Active Substance: CHOLECALCIFEROL
  7. MONTELUKAST [Concomitant]
     Active Substance: MONTELUKAST
  8. CALCIUM [Concomitant]
     Active Substance: CALCIUM
  9. HYDROCORTISONE [Concomitant]
     Active Substance: HYDROCORTISONE
  10. VITREXYL [Concomitant]
     Active Substance: .ALPHA.-TOCOPHEROL ACETATE, DL-\ASCORBIC ACID\CALCIUM CARBONATE\CHOLECALCIFEROL\CHROMIUM NICOTINATE\
  11. DEXAMETHASONE [Concomitant]
     Active Substance: DEXAMETHASONE
  12. BETAMETHASONE [Concomitant]
     Active Substance: BETAMETHASONE
  13. VALTREX [Concomitant]
     Active Substance: VALACYCLOVIR HYDROCHLORIDE
  14. ESTROGEL [Concomitant]
     Active Substance: ESTRADIOL
  15. LISINOPRIL [Concomitant]
     Active Substance: LISINOPRIL
  16. CLARITIN [Concomitant]
     Active Substance: LORATADINE
  17. SINGULAIR [Concomitant]
     Active Substance: MONTELUKAST SODIUM

REACTIONS (1)
  - Proctalgia [Unknown]

NARRATIVE: CASE EVENT DATE: 20241227
